FAERS Safety Report 21404046 (Version 2)
Quarter: 2022Q4

REPORT INFORMATION
  Report Type: Spontaneous
  Country: AU (occurrence: AU)
  Receive Date: 20221003
  Receipt Date: 20221104
  Transmission Date: 20230113
  Serious: Yes (Other)
  Sender: FDA-Public Use
  Company Number: AU-JNJFOC-20220943071

PATIENT
  Age: 68 Year
  Sex: Male

DRUGS (12)
  1. RIBOMUSTIN [Suspect]
     Active Substance: BENDAMUSTINE HYDROCHLORIDE
     Indication: Mantle cell lymphoma
     Dosage: (THIRD LINE)
     Route: 042
     Dates: start: 20210301, end: 20210701
  2. IMBRUVICA [Suspect]
     Active Substance: IBRUTINIB
     Indication: Mantle cell lymphoma
     Dosage: (SECOND LINE)
     Route: 065
     Dates: start: 20200801, end: 20210301
  3. LEUCOVORIN CALCIUM [Suspect]
     Active Substance: LEUCOVORIN CALCIUM
     Indication: Mantle cell lymphoma
     Dosage: (FOURTH LINE)
     Route: 042
     Dates: start: 20210801, end: 20211101
  4. CYTARABINE [Suspect]
     Active Substance: CYTARABINE
     Indication: Mantle cell lymphoma
     Route: 065
     Dates: start: 20180301, end: 20180801
  5. CYTARABINE [Suspect]
     Active Substance: CYTARABINE
     Dosage: (FOURTH LINE)
     Route: 065
     Dates: start: 20210801, end: 20211101
  6. RITUXIMAB [Suspect]
     Active Substance: RITUXIMAB
     Indication: Product used for unknown indication
     Route: 042
     Dates: start: 20180301, end: 20180801
  7. RITUXIMAB [Suspect]
     Active Substance: RITUXIMAB
     Dosage: (FOURTH LINE)
     Route: 042
     Dates: start: 20210801, end: 20211101
  8. METHOTREXATE [Suspect]
     Active Substance: METHOTREXATE
     Indication: Mantle cell lymphoma
     Dosage: (FOURTH LINE)
     Route: 042
     Dates: start: 20210801, end: 20211101
  9. THIOTEPA [Suspect]
     Active Substance: THIOTEPA
     Indication: Mantle cell lymphoma
     Dosage: (FOURTH LINE)
     Route: 065
     Dates: start: 20210801, end: 20211101
  10. BACTRIM DS [Concomitant]
     Active Substance: SULFAMETHOXAZOLE\TRIMETHOPRIM
     Indication: Product used for unknown indication
     Route: 065
  11. FAMOTIDINE [Concomitant]
     Active Substance: FAMOTIDINE
     Indication: Product used for unknown indication
     Route: 065
  12. VALACYCLOVIR HYDROCHLORIDE [Concomitant]
     Active Substance: VALACYCLOVIR HYDROCHLORIDE
     Indication: Product used for unknown indication
     Route: 065

REACTIONS (3)
  - Malignant neoplasm progression [Unknown]
  - Thrombocytopenia [Unknown]
  - Drug ineffective [Unknown]
